FAERS Safety Report 10628000 (Version 2)
Quarter: 2014Q4

REPORT INFORMATION
  Report Type: Spontaneous
  Country: US (occurrence: US)
  Receive Date: 20141205
  Receipt Date: 20141205
  Transmission Date: 20150529
  Serious: Yes (Life-Threatening, Hospitalization)
  Sender: FDA-Public Use
  Company Number: US-BRISTOL-MYERS SQUIBB COMPANY-20463774

PATIENT
  Age: 5 Decade
  Sex: Male

DRUGS (1)
  1. ERBITUX [Suspect]
     Active Substance: CETUXIMAB
     Indication: HEAD AND NECK CANCER METASTATIC
     Dosage: 1 DF= 676 MG WKLY
     Route: 042
     Dates: start: 20140227, end: 20140227

REACTIONS (5)
  - Dyspnoea [Unknown]
  - Blood pressure decreased [Unknown]
  - Tachycardia [Unknown]
  - Oropharyngeal discomfort [Unknown]
  - Hyperhidrosis [Unknown]

NARRATIVE: CASE EVENT DATE: 20140227
